FAERS Safety Report 8165490-X (Version None)
Quarter: 2012Q1

REPORT INFORMATION
  Report Type: 
  Country: None (occurrence: None)
  Receive Date: 20120227
  Receipt Date: 20120215
  Transmission Date: 20120608
  Serious: Yes (Other)
  Sender: FDA-Public Use
  Company Number: CA-JNJFOC-20120113328

PATIENT
  Sex: Female
  Weight: 70 kg

DRUGS (12)
  1. CORTISONE ACETATE [Concomitant]
     Route: 065
  2. REMICADE [Suspect]
     Route: 042
     Dates: start: 20120215
  3. CALCIUM [Concomitant]
     Route: 065
  4. MESALAMINE [Concomitant]
     Route: 065
  5. ATIVAN [Concomitant]
     Route: 065
  6. DEXILANT [Concomitant]
     Route: 065
  7. REMICADE [Suspect]
     Route: 042
     Dates: start: 20111221
  8. ADVAIR DISKUS 100/50 [Concomitant]
     Route: 065
  9. ACETAMINOPHEN [Concomitant]
     Indication: MIGRAINE
     Route: 065
  10. VITAMIN D [Concomitant]
     Indication: GASTROOESOPHAGEAL REFLUX DISEASE
     Route: 065
  11. REMICADE [Suspect]
     Indication: COLITIS ULCERATIVE
     Route: 042
     Dates: start: 20110720
  12. SPIRIVA [Concomitant]
     Route: 065

REACTIONS (7)
  - ANXIETY [None]
  - VISION BLURRED [None]
  - ARTHRITIS [None]
  - INSOMNIA [None]
  - ARTHRALGIA [None]
  - BACK PAIN [None]
  - INFLAMMATION [None]
